FAERS Safety Report 9817285 (Version 1)
Quarter: 2014Q1

REPORT INFORMATION
  Report Type: Report from Study
  Country: GR (occurrence: GR)
  Receive Date: 20140115
  Receipt Date: 20140115
  Transmission Date: 20141002
  Serious: Yes (Death, Other)
  Sender: FDA-Public Use
  Company Number: GR-ROCHE-1332791

PATIENT
  Age: 77 Year
  Sex: Male

DRUGS (8)
  1. BEVACIZUMAB [Suspect]
     Indication: NON-SMALL CELL LUNG CANCER
     Dosage: DOSE: 740 MG TOTAL
     Route: 042
     Dates: start: 20101117, end: 20110218
  2. ERLOTINIB [Suspect]
     Indication: NON-SMALL CELL LUNG CANCER
     Route: 048
     Dates: start: 20110728
  3. CARBOPLATIN [Concomitant]
     Indication: NON-SMALL CELL LUNG CANCER
     Route: 042
     Dates: start: 20101117, end: 20110218
  4. PEMETREXED [Concomitant]
     Indication: NON-SMALL CELL LUNG CANCER
     Route: 042
     Dates: start: 20101117, end: 20110218
  5. ZURCAZOL [Concomitant]
     Dosage: 40 NOS
     Route: 065
  6. EPREX [Concomitant]
     Dosage: 2/CYCLE
     Route: 065
  7. LOSEC (GREECE) [Concomitant]
     Dosage: 20 NOS
     Route: 065
  8. ZARZIO [Concomitant]
     Dosage: 2 INJ/CYCLE
     Route: 065

REACTIONS (5)
  - Death [Fatal]
  - Disease progression [Unknown]
  - Asthenia [Unknown]
  - Decreased appetite [Unknown]
  - Hypoaesthesia [Unknown]
